FAERS Safety Report 8614265-3 (Version None)
Quarter: 2012Q3

REPORT INFORMATION
  Report Type: 
  Country: None (occurrence: None)
  Receive Date: 20120823
  Receipt Date: 20120813
  Transmission Date: 20120928
  Serious: Yes (Hospitalization, Other)
  Sender: FDA-Public Use
  Company Number: US-009507513-2011SP056194

PATIENT

DRUGS (4)
  1. NUVARING [Suspect]
     Indication: MENSTRUAL CYCLE MANAGEMENT
     Dates: start: 20070101, end: 20091231
  2. HORMONAL CONTRACEPTIVES (UNSPECIFIED) [Suspect]
     Indication: PRODUCT USED FOR UNKNOWN INDICATION
  3. COUMADIN [Suspect]
     Indication: ANTICOAGULANT THERAPY
     Dates: start: 20091201
  4. NUVARING [Suspect]
     Dates: start: 20090601

REACTIONS (12)
  - LUNG DISORDER [None]
  - DEEP VEIN THROMBOSIS [None]
  - HAEMORRHAGIC DISORDER [None]
  - MENORRHAGIA [None]
  - PNEUMONIA PRIMARY ATYPICAL [None]
  - MIGRAINE [None]
  - OFF LABEL USE [None]
  - LUNG NEOPLASM [None]
  - HYPERCOAGULATION [None]
  - MUSCLE SPASMS [None]
  - PULMONARY EMBOLISM [None]
  - STREPTOCOCCAL INFECTION [None]
